FAERS Safety Report 18068796 (Version 1)
Quarter: 2020Q3

REPORT INFORMATION
  Report Type: Spontaneous
  Country: CN (occurrence: CN)
  Receive Date: 20200724
  Receipt Date: 20200724
  Transmission Date: 20201103
  Serious: Yes (Other)
  Sender: FDA-Public Use
  Company Number: CN-FOUNDATIONCONSUMERHC-2020-CN-000188

PATIENT
  Age: 28 Year
  Sex: Female
  Weight: 55 kg

DRUGS (3)
  1. BAOTAILING [Suspect]
     Active Substance: HERBALS
  2. FOLIC ACID. [Suspect]
     Active Substance: FOLIC ACID
  3. LEVONORGESTREL (UNSPECIFIED) [Suspect]
     Active Substance: LEVONORGESTREL
     Indication: POST COITAL CONTRACEPTION
     Route: 048
     Dates: start: 20200603, end: 20200603

REACTIONS (3)
  - Drug ineffective [Recovered/Resolved]
  - Abortion spontaneous [Recovered/Resolved]
  - Pregnancy after post coital contraception [Recovered/Resolved]

NARRATIVE: CASE EVENT DATE: 20200625
